FAERS Safety Report 20300272 (Version 1)
Quarter: 2022Q1

REPORT INFORMATION
  Report Type: Spontaneous
  Country: DE (occurrence: DE)
  Receive Date: 20220105
  Receipt Date: 20220105
  Transmission Date: 20220424
  Serious: Yes (Hospitalization)
  Sender: FDA-Public Use
  Company Number: DE-ADRED-05776-01

PATIENT
  Age: 49 Year
  Sex: Male
  Weight: 65 kg

DRUGS (8)
  1. FLUOROURACIL [Suspect]
     Active Substance: FLUOROURACIL
     Indication: Product used for unknown indication
     Dosage: UNK,INJEKTIONS-/INFUSIONSLOSUNG
     Route: 042
  2. MORPHIN MERCK [Concomitant]
     Dosage: UNK,2, MORGENS ACHT TROPFEN BEI BEDARF, TROPFEN
     Route: 048
  3. INNOHEP [Concomitant]
     Active Substance: TINZAPARIN SODIUM
     Dosage: 20000|0.7 IE/ML, 0-0-1-0, FERTIGSPRITZEN
     Route: 058
  4. METAMIZOL [Concomitant]
     Active Substance: METAMIZOLE SODIUM
     Dosage: 500 MG/ML, VIERMAL VIERZIG TROPFEN, TROPFEN
     Route: 048
  5. TEMAZEP [Concomitant]
     Dosage: 10 MG, BEI BEDARF, KAPSELN
     Route: 048
  6. LOPERAMID ARISTO [Concomitant]
     Dosage: UNK,2 MG, BEI BEDARF, TABLETTEN
     Route: 048
  7. MORPHINE SULFATE [Concomitant]
     Active Substance: MORPHINE SULFATE
     Dosage: 10 MILLIGRAM, QD (10 MG, 0-0-1-0)
     Route: 048
  8. MCP-RATIOPHARM [Concomitant]
     Active Substance: METOCLOPRAMIDE HYDROCHLORIDE
     Dosage: 10 MILLIGRAM, TID (10 MG, 1-1-1-0)
     Route: 048

REACTIONS (6)
  - Penile swelling [Unknown]
  - General physical health deterioration [Unknown]
  - Abdominal pain [Unknown]
  - Dysuria [Unknown]
  - Diarrhoea [Unknown]
  - Fatigue [Unknown]
